FAERS Safety Report 20677876 (Version 1)
Quarter: 2022Q2

REPORT INFORMATION
  Report Type: Spontaneous
  Country: FR (occurrence: FR)
  Receive Date: 20220406
  Receipt Date: 20220406
  Transmission Date: 20220721
  Serious: Yes (Hospitalization, Other)
  Sender: FDA-Public Use
  Company Number: FR-002147023-NVSC2022FR063636

PATIENT
  Sex: Female
  Weight: 13 kg

DRUGS (2)
  1. NEBIVOLOL [Suspect]
     Active Substance: NEBIVOLOL
     Indication: Tachycardia
     Dosage: 8 MILLIGRAM, ONCE A DAY (8 MG, QD)
     Route: 048
     Dates: end: 20220224
  2. KYMRIAH [Suspect]
     Active Substance: TISAGENLECLEUCEL
     Indication: Follicular lymphoma
     Dosage: UNK, 1 TOTAL (UNK, ONCE/SINGLE (0.6 X 10E8- 6 X 10E8)
     Route: 042
     Dates: start: 20220222, end: 20220222

REACTIONS (3)
  - Sinus node dysfunction [Recovered/Resolved]
  - Syncope [Recovered/Resolved]
  - Cytokine release syndrome [Unknown]

NARRATIVE: CASE EVENT DATE: 20220224
